FAERS Safety Report 6508307-9 (Version None)
Quarter: 2009Q4

REPORT INFORMATION
  Report Type: 
  Country: None (occurrence: None)
  Receive Date: 20091221
  Receipt Date: 20090211
  Transmission Date: 20100525
  Serious: No
  Sender: FDA-Public Use
  Company Number: US-ASTRAZENECA-2008UW06471

PATIENT
  Age: 65 Year
  Sex: Female
  Weight: 60.8 kg

DRUGS (6)
  1. CRESTOR [Suspect]
     Indication: BLOOD CHOLESTEROL INCREASED
     Dosage: 10 MG IN AM
     Route: 048
     Dates: start: 20081201, end: 20081201
  2. CADUET [Concomitant]
     Dosage: QD
  3. IBUPROFEN [Concomitant]
     Indication: RHEUMATOID ARTHRITIS
     Dosage: QD
  4. WATER PILL [Concomitant]
  5. METHOCARBAMOL [Concomitant]
     Indication: LIMB CRUSHING INJURY
  6. SINGULAIR [Concomitant]
     Indication: ASTHMA
     Dosage: QD

REACTIONS (4)
  - ABDOMINAL PAIN UPPER [None]
  - DIARRHOEA [None]
  - NAUSEA [None]
  - VOMITING [None]
